FAERS Safety Report 14647904 (Version 1)
Quarter: 2018Q1

REPORT INFORMATION
  Report Type: Spontaneous
  Country: JP (occurrence: JP)
  Receive Date: 20180316
  Receipt Date: 20180316
  Transmission Date: 20180509
  Serious: Yes (Life-Threatening, Other)
  Sender: FDA-Public Use
  Company Number: JP-BAUSCH-BL-2018-006554

PATIENT
  Age: 69 Year
  Sex: Female

DRUGS (2)
  1. BORTEZOMIB [Suspect]
     Active Substance: BORTEZOMIB
     Indication: PLASMA CELL MYELOMA
     Dosage: REDUCED DOSE 1.3 MG/M2, SC, ONCE/WK FOR 4 WKS; 2 CYCLICAL
     Route: 058
     Dates: start: 20160711, end: 20160906
  2. DEXAMETHASONE. [Suspect]
     Active Substance: DEXAMETHASONE
     Indication: PLASMA CELL MYELOMA
     Dosage: DEX 20 MG/DAY, TWICE/WK FOR 4 WKS, EVERY 6-WK CYCLE; 2 CYCLICAL
     Route: 065
     Dates: start: 20160711, end: 20160906

REACTIONS (1)
  - Drug ineffective [Unknown]
